FAERS Safety Report 5558138-1 (Version None)
Quarter: 2007Q4

REPORT INFORMATION
  Report Type: 
  Country: None (occurrence: None)
  Receive Date: 20071214
  Receipt Date: 20071204
  Transmission Date: 20080405
  Serious: Yes (Hospitalization)
  Sender: FDA-Public Use
  Company Number: US-PFIZER INC-2007102477

PATIENT
  Sex: Male
  Weight: 81.6 kg

DRUGS (2)
  1. DILANTIN [Suspect]
     Indication: CONVULSION
  2. PHENOBARBITONE [Concomitant]

REACTIONS (1)
  - SURGERY [None]
